FAERS Safety Report 6141479-7 (Version None)
Quarter: 2009Q2

REPORT INFORMATION
  Report Type: 
  Country: None (occurrence: None)
  Receive Date: 20090402
  Receipt Date: 20090324
  Transmission Date: 20091009
  Serious: Yes (Death, Other)
  Sender: FDA-Public Use
  Company Number: IN-ABBOTT-09P-078-0564238-00

PATIENT
  Age: 44 Year
  Sex: Female

DRUGS (2)
  1. VALPROATE SODIUM [Suspect]
     Indication: MYOCLONIC EPILEPSY
     Route: 065
  2. LAMOTRIGINE [Suspect]
     Indication: MYOCLONIC EPILEPSY

REACTIONS (6)
  - ASTERIXIS [None]
  - CONFUSIONAL STATE [None]
  - DRUG INTERACTION [None]
  - HYPERAMMONAEMIA [None]
  - METABOLIC ENCEPHALOPATHY [None]
  - STEVENS-JOHNSON SYNDROME [None]
